FAERS Safety Report 6037673-6 (Version None)
Quarter: 2009Q1

REPORT INFORMATION
  Report Type: 
  Country: None (occurrence: None)
  Receive Date: 20090113
  Receipt Date: 20090107
  Transmission Date: 20090719
  Serious: Yes (Life-Threatening)
  Sender: FDA-Public Use
  Company Number: APP200900009

PATIENT
  Sex: Female

DRUGS (3)
  1. HEPARIN SODIUM INJECTION [Suspect]
     Indication: DRUG USE FOR UNKNOWN INDICATION
     Dosage: 8000 USP UNITS, 2 IN  1 D, 8000 USP UNITS, 2 IN  1 D
  2. HEPARIN SODIUM INJECTION [Suspect]
  3. HEPARIN SODIUM INJECTION [Suspect]

REACTIONS (2)
  - BLOOD TEST ABNORMAL [None]
  - DRUG INEFFECTIVE [None]
